FAERS Safety Report 9843969 (Version 2)
Quarter: 2014Q3

REPORT INFORMATION
  Report Type: Spontaneous
  Country: US (occurrence: US)
  Receive Date: 20140126
  Receipt Date: 20140819
  Transmission Date: 20150326
  Serious: Yes (Hospitalization, Other)
  Sender: FDA-Public Use
  Company Number: US-009507513-1401USA011472

PATIENT
  Sex: Female
  Weight: 81.63 kg

DRUGS (1)
  1. NUVARING [Suspect]
     Active Substance: ETHINYL ESTRADIOL\ETONOGESTREL
     Indication: CONTRACEPTION
     Dosage: UNK
     Route: 067
     Dates: start: 2012, end: 201304

REACTIONS (10)
  - Pericardial effusion [Unknown]
  - Basal cell carcinoma [Unknown]
  - Gastrooesophageal reflux disease [Unknown]
  - Pneumonia [Unknown]
  - Hepatic lesion [Unknown]
  - Pericardial cyst [Unknown]
  - Herpes zoster [Unknown]
  - Skin neoplasm excision [Unknown]
  - Pulmonary embolism [Unknown]
  - Plastic surgery to the face [Unknown]

NARRATIVE: CASE EVENT DATE: 2013
